FAERS Safety Report 24548619 (Version 1)
Quarter: 2024Q4

REPORT INFORMATION
  Report Type: Spontaneous
  Country: US (occurrence: None)
  Receive Date: 20241023
  Receipt Date: 20241023
  Transmission Date: 20250115
  Serious: Yes (Hospitalization)
  Sender: Public
  Company Number: None

PATIENT
  Age: 76 Year
  Sex: Male

DRUGS (5)
  1. EMPAGLIFLOZIN [Suspect]
     Active Substance: EMPAGLIFLOZIN
     Indication: Prophylaxis
     Dosage: FREQUENCY : DAILY;?
     Route: 048
     Dates: start: 20240210, end: 20240506
  2. EMPAGLIFLOZIN [Suspect]
     Active Substance: EMPAGLIFLOZIN
     Indication: Renal disorder
  3. EMPAGLIFLOZIN [Suspect]
     Active Substance: EMPAGLIFLOZIN
     Indication: Cardiac disorder
  4. LANTUS [Suspect]
     Active Substance: INSULIN GLARGINE
  5. METFORMIN [Suspect]
     Active Substance: METFORMIN HYDROCHLORIDE

REACTIONS (10)
  - Scrotal cellulitis [None]
  - Bacteraemia [None]
  - Enterococcal infection [None]
  - Candida infection [None]
  - Urinary tract candidiasis [None]
  - Urinary incontinence [None]
  - Genitourinary tract infection [None]
  - Blood pressure decreased [None]
  - Glycosylated haemoglobin increased [None]
  - Acute kidney injury [None]

NARRATIVE: CASE EVENT DATE: 20240506
